FAERS Safety Report 5127530-1 (Version None)
Quarter: 2006Q4

REPORT INFORMATION
  Report Type: 
  Country: None (occurrence: None)
  Receive Date: 20061016
  Receipt Date: 20061002
  Transmission Date: 20070319
  Serious: Yes (Death)
  Sender: FDA-Public Use
  Company Number: US-JNJFOC-20040303616

PATIENT
  Sex: Female
  Weight: 60.78 kg

DRUGS (25)
  1. REMICADE [Suspect]
     Route: 042
  2. REMICADE [Suspect]
     Route: 042
  3. REMICADE [Suspect]
     Indication: RHEUMATOID ARTHRITIS
     Route: 042
  4. IBUPROFEN [Concomitant]
  5. EVISTA [Concomitant]
  6. PROPRANOLOL [Concomitant]
  7. FOLIC ACID [Concomitant]
  8. MULTI-VITAMIN [Concomitant]
  9. CALCIUM PLUS D [Concomitant]
  10. ASPIRIN [Concomitant]
  11. NEURONTIN [Concomitant]
  12. NEXIUM [Concomitant]
  13. VICODIN [Concomitant]
  14. AMITRIPTYLINE HCL [Concomitant]
  15. BENZONATATE [Concomitant]
  16. FAMVIR [Concomitant]
  17. PLAQUENIL [Concomitant]
  18. KINERET [Concomitant]
  19. METHOTREXATE [Concomitant]
  20. ARAVA [Concomitant]
  21. ANTIBIOTIC [Concomitant]
  22. HYDROCODONE BITARTRATE [Concomitant]
  23. TYLENOL [Concomitant]
  24. CELEBREX [Concomitant]
  25. GOLD [Concomitant]

REACTIONS (1)
  - NEOPLASM MALIGNANT [None]
